FAERS Safety Report 18129463 (Version 1)
Quarter: 2020Q3

REPORT INFORMATION
  Report Type: Spontaneous
  Country: US (occurrence: US)
  Receive Date: 20200807
  Receipt Date: 20200807
  Transmission Date: 20201103
  Serious: Yes (Life-Threatening, Hospitalization, Disabling, Other)
  Sender: FDA-Public Use
  Company Number: None

PATIENT
  Age: 54 Year
  Sex: Male
  Weight: 179 kg

DRUGS (1)
  1. CANAGLIFLOZIN 100MG QDAY [Suspect]
     Active Substance: CANAGLIFLOZIN
     Indication: DIABETES MELLITUS
     Route: 048
     Dates: start: 20190101, end: 20200128

REACTIONS (2)
  - Illness [None]
  - Fournier^s gangrene [None]

NARRATIVE: CASE EVENT DATE: 20200728
